FAERS Safety Report 6080405-6 (Version None)
Quarter: 2009Q1

REPORT INFORMATION
  Report Type: 
  Country: None (occurrence: None)
  Receive Date: 20090217
  Receipt Date: 20090204
  Transmission Date: 20090719
  Serious: Yes (Other)
  Sender: FDA-Public Use
  Company Number: GB-PFIZER INC-2009165159

PATIENT

DRUGS (2)
  1. AZITHROMYCIN [Suspect]
     Dosage: 500 MG, 2X/DAY
  2. TEGRETOL [Suspect]
     Dosage: 400 MG, 2X/DAY

REACTIONS (2)
  - ATAXIA [None]
  - GAIT DISTURBANCE [None]
